FAERS Safety Report 4683107-3 (Version None)
Quarter: 2005Q2

REPORT INFORMATION
  Report Type: 
  Country: None (occurrence: None)
  Receive Date: 20050602
  Receipt Date: 20050412
  Transmission Date: 20051028
  Serious: No
  Sender: FDA-Public Use
  Company Number: USA050394494

PATIENT
  Age: 28 Year
  Sex: Female
  Weight: 63.5036 kg

DRUGS (2)
  1. CYMBALTA [Suspect]
     Indication: DEPRESSION
     Dosage: 40 MG DAY
     Dates: start: 20050301
  2. ORTHO TRI-CYCLEN LO [Concomitant]

REACTIONS (2)
  - DRUG INTERACTION [None]
  - METRORRHAGIA [None]
